FAERS Safety Report 19916906 (Version 1)
Quarter: 2021Q4

REPORT INFORMATION
  Report Type: Spontaneous
  Country: US (occurrence: US)
  Receive Date: 20211004
  Receipt Date: 20211004
  Transmission Date: 20220303
  Serious: Yes (Other)
  Sender: FDA-Public Use
  Company Number: None

PATIENT
  Age: 22 Year
  Sex: Female
  Weight: 70.31 kg

DRUGS (10)
  1. PARAGARD T 380A [Suspect]
     Active Substance: COPPER
  2. ADDERALL [Concomitant]
     Active Substance: AMPHETAMINE ASPARTATE\AMPHETAMINE SULFATE\DEXTROAMPHETAMINE SACCHARATE\DEXTROAMPHETAMINE SULFATE
  3. ZOLOFT [Concomitant]
     Active Substance: SERTRALINE HYDROCHLORIDE
  4. OMEGA-3 ACIDS [Concomitant]
     Active Substance: OMEGA-3 FATTY ACIDS
  5. PORIA EXTRACT [Concomitant]
  6. CLARITIN-D NOS [Concomitant]
     Active Substance: LORATADINE\PSEUDOEPHEDRINE SULFATE
  7. IBUPROFEN [Concomitant]
     Active Substance: IBUPROFEN
  8. COLLAGEN [Concomitant]
     Active Substance: COLLAGEN
  9. VITAMIN C [Concomitant]
     Active Substance: ASCORBIC ACID
  10. VITAMIN D [Concomitant]
     Active Substance: VITAMIN D NOS

REACTIONS (6)
  - Heavy menstrual bleeding [None]
  - Intermenstrual bleeding [None]
  - Pain [None]
  - Muscle spasms [None]
  - Device dislocation [None]
  - Device expulsion [None]

NARRATIVE: CASE EVENT DATE: 20211001
